FAERS Safety Report 17209383 (Version 1)
Quarter: 2019Q4

REPORT INFORMATION
  Report Type: Spontaneous
  Country: AT (occurrence: AT)
  Receive Date: 20191227
  Receipt Date: 20191227
  Transmission Date: 20200122
  Serious: Yes (Other)
  Sender: FDA-Public Use
  Company Number: AT-ROCHE-2508389

PATIENT
  Age: 59 Year
  Sex: Female
  Weight: 68 kg

DRUGS (1)
  1. BONVIVA [Suspect]
     Active Substance: IBANDRONATE SODIUM
     Indication: OSTEOPOROSIS
     Route: 042
     Dates: start: 20170819, end: 20171114

REACTIONS (6)
  - Stomatitis [Recovered/Resolved]
  - Musculoskeletal pain [Recovered/Resolved]
  - Fatigue [Recovered/Resolved]
  - Headache [Recovered/Resolved]
  - Oral mucosa erosion [Recovered/Resolved]
  - Glossitis [Recovered/Resolved]

NARRATIVE: CASE EVENT DATE: 201711
